FAERS Safety Report 9457200 (Version 3)
Quarter: 2014Q2

REPORT INFORMATION
  Report Type: Spontaneous
  Country: GB (occurrence: GB)
  Receive Date: 20130814
  Receipt Date: 20140410
  Transmission Date: 20141212
  Serious: Yes (Hospitalization)
  Sender: FDA-Public Use
  Company Number: GB-ROCHE-1260261

PATIENT
  Age: 53 Year
  Sex: Female

DRUGS (17)
  1. MYCOPHENOLATE MOFETIL [Suspect]
     Indication: SYSTEMIC LUPUS ERYTHEMATOSUS
     Route: 048
     Dates: end: 20130215
  2. MYCOPHENOLATE MOFETIL [Suspect]
     Route: 048
  3. BELIMUMAB [Suspect]
     Indication: SYSTEMIC LUPUS ERYTHEMATOSUS
     Route: 042
     Dates: start: 20120208
  4. ADCAL-D3 [Concomitant]
     Route: 065
  5. ALENDRONATE [Concomitant]
     Indication: OSTEOPOROSIS PROPHYLAXIS
     Route: 048
  6. ASPIRIN [Concomitant]
     Indication: ANTIPHOSPHOLIPID SYNDROME
     Route: 065
  7. FERROUS FUMARATE [Concomitant]
     Indication: ANAEMIA
     Route: 048
  8. FUROSEMIDE [Concomitant]
     Route: 065
  9. GABAPENTIN [Concomitant]
     Indication: EPILEPSY
     Route: 065
  10. HYDROXYCHLOROQUINE [Concomitant]
     Indication: SYSTEMIC LUPUS ERYTHEMATOSUS
     Route: 048
  11. KEPPRA [Concomitant]
     Indication: SYSTEMIC LUPUS ERYTHEMATOSUS
     Route: 048
  12. LANSOPRAZOLE [Concomitant]
     Indication: DYSPEPSIA
     Route: 065
  13. LOSARTAN [Concomitant]
     Indication: HYPERTENSION
     Route: 065
  14. OROTIC ACID [Concomitant]
     Indication: ANAEMIA
  15. PARACETAMOL [Concomitant]
     Indication: ARTHRALGIA
  16. PREDNISONE [Concomitant]
     Indication: SYSTEMIC LUPUS ERYTHEMATOSUS
     Route: 048
  17. PREDNISOLONE [Concomitant]

REACTIONS (8)
  - C-reactive protein increased [Recovered/Resolved]
  - Pyrexia [Recovered/Resolved]
  - Infection [Recovered/Resolved]
  - Liver function test abnormal [Recovered/Resolved]
  - Neutropenia [Recovered/Resolved]
  - SLE arthritis [Recovered/Resolved]
  - Febrile neutropenia [Unknown]
  - Pleuritic pain [Unknown]
